FAERS Safety Report 8503623-3 (Version None)
Quarter: 2012Q3

REPORT INFORMATION
  Report Type: 
  Country: None (occurrence: None)
  Receive Date: 20120711
  Receipt Date: 20120706
  Transmission Date: 20120928
  Serious: Yes (Other)
  Sender: FDA-Public Use
  Company Number: PHHY2012JP024822

PATIENT
  Sex: Female
  Weight: 50 kg

DRUGS (9)
  1. METFORMIN HCL [Concomitant]
     Indication: DIABETES MELLITUS
     Dosage: 500 MG, UNK
     Route: 048
     Dates: end: 20120531
  2. EXELON [Suspect]
     Dosage: 13.5 MG, DAILY
     Route: 062
     Dates: start: 20120410
  3. JANUVIA [Concomitant]
     Indication: DIABETES MELLITUS
     Dosage: 50 MG, UNK
     Route: 048
  4. EXELON [Suspect]
     Indication: DEMENTIA ALZHEIMER'S TYPE
     Dosage: 4.5 MG, DAILY
     Route: 062
     Dates: start: 20120222, end: 20120313
  5. CRESTOR [Concomitant]
     Indication: DYSLIPIDAEMIA
     Dosage: 2.5 MG, UNK
     Route: 048
  6. LANTUS [Concomitant]
     Indication: DIABETES MELLITUS
     Dosage: 14 IU, UNK
     Route: 058
     Dates: start: 20120203
  7. EXELON [Suspect]
     Dosage: 18 MG, DAILY
     Route: 062
     Dates: start: 20120501
  8. METFORMIN HCL [Concomitant]
     Indication: DIABETES MELLITUS
     Dosage: 4 DF, (4 TABLETS DAILY (IN TWO DOSES PER DAY))
     Route: 048
     Dates: start: 20120601
  9. EXELON [Suspect]
     Dosage: 9 MG, DAILY
     Route: 062
     Dates: start: 20120314, end: 20120409

REACTIONS (1)
  - BLOOD GLUCOSE INCREASED [None]
